FAERS Safety Report 21339164 (Version 2)
Quarter: 2022Q3

REPORT INFORMATION
  Report Type: Spontaneous
  Country: DE (occurrence: DE)
  Receive Date: 20220915
  Receipt Date: 20220926
  Transmission Date: 20221026
  Serious: Yes (Hospitalization)
  Sender: FDA-Public Use
  Company Number: DE-BoehringerIngelheim-2022-BI-191636

PATIENT
  Age: 62 Year
  Sex: Female

DRUGS (4)
  1. NINTEDANIB [Suspect]
     Active Substance: NINTEDANIB
     Indication: Rheumatoid arthritis-associated interstitial lung disease
     Dates: start: 202007
  2. METHOTREXATE [Concomitant]
     Active Substance: METHOTREXATE
     Indication: Pulmonary function test decreased
     Dates: start: 202002
  3. PREDNISOLONE [Concomitant]
     Active Substance: PREDNISOLONE
     Indication: Pulmonary function test decreased
     Dates: start: 202002, end: 202202
  4. ABATACEPT [Concomitant]
     Active Substance: ABATACEPT
     Indication: Product used for unknown indication
     Dates: start: 202112

REACTIONS (4)
  - Lung diffusion disorder [Unknown]
  - Dyspnoea at rest [Recovering/Resolving]
  - Pulmonary function test decreased [Unknown]
  - Osteoarthritis [Unknown]

NARRATIVE: CASE EVENT DATE: 20211001
